FAERS Safety Report 11017708 (Version 2)
Quarter: 2015Q2

REPORT INFORMATION
  Report Type: Spontaneous
  Country: US (occurrence: US)
  Receive Date: 20150412
  Receipt Date: 20150525
  Transmission Date: 20150821
  Serious: No
  Sender: FDA-Public Use
  Company Number: US-JNJFOC-20130701911

PATIENT
  Sex: Female

DRUGS (6)
  1. ALEVE [Concomitant]
     Active Substance: NAPROXEN SODIUM
     Indication: PAIN
     Dosage: ONCE A MONTH AS NEEDED
     Route: 048
  2. ORTHO EVRA [Suspect]
     Active Substance: ETHINYL ESTRADIOL\NORELGESTROMIN
     Indication: DYSMENORRHOEA
     Route: 062
     Dates: start: 201209
  3. FLOVENT [Concomitant]
     Active Substance: FLUTICASONE PROPIONATE
     Indication: ASTHMA
     Route: 048
  4. GUMMI BEARS WHOLE FOOD VITAMINS [Concomitant]
     Indication: MALNUTRITION
     Route: 065
  5. VICODIN [Concomitant]
     Active Substance: ACETAMINOPHEN\HYDROCODONE BITARTRATE
     Indication: PAIN
     Dosage: ONCE A MONTH AS NEEDED
     Route: 048
     Dates: start: 201106
  6. ALBUTEROL. [Concomitant]
     Active Substance: ALBUTEROL
     Indication: ASTHMA EXERCISE INDUCED
     Dosage: 2 PUFFS AS NEEDED
     Route: 048

REACTIONS (6)
  - Product use issue [Unknown]
  - Product quality issue [Unknown]
  - Dysmenorrhoea [Not Recovered/Not Resolved]
  - Breast pain [Recovering/Resolving]
  - Coeliac disease [Not Recovered/Not Resolved]
  - Weight increased [Recovering/Resolving]

NARRATIVE: CASE EVENT DATE: 2012
